FAERS Safety Report 14992772 (Version 2)
Quarter: 2018Q3

REPORT INFORMATION
  Report Type: Report from Study
  Country: ES (occurrence: ES)
  Receive Date: 20180609
  Receipt Date: 20180723
  Transmission Date: 20181010
  Serious: Yes (Life-Threatening, Hospitalization, Other)
  Sender: FDA-Public Use
  Company Number: ES-TEVA-2018-ES-902778

PATIENT
  Age: 35 Year
  Sex: Female

DRUGS (6)
  1. OXCARBAZEPINA (2570A) [Interacting]
     Active Substance: OXCARBAZEPINE
     Indication: INTENTIONAL OVERDOSE
     Route: 048
     Dates: start: 20170306, end: 20170306
  2. OLANZAPINA (2770A) [Interacting]
     Active Substance: OLANZAPINE
     Indication: INTENTIONAL OVERDOSE
     Route: 048
     Dates: start: 20170306, end: 20170306
  3. CLONAZEPAM (635A) [Concomitant]
     Active Substance: CLONAZEPAM
     Indication: PERSONALITY DISORDER
     Dosage: 2 MILLIGRAM DAILY;
     Route: 048
     Dates: start: 201607, end: 20170305
  4. PAROXETINA HIDROCLORURO (2586CH) [Suspect]
     Active Substance: PAROXETINE
     Indication: INTENTIONAL OVERDOSE
     Route: 048
     Dates: start: 20170306, end: 20170306
  5. PAROXETINA  HIDROCLORURO (2586CH) [Concomitant]
     Active Substance: PAROXETINE
     Indication: PERSONALITY DISORDER
     Dosage: 20 MILLIGRAM DAILY;
     Route: 048
     Dates: start: 20151113, end: 20160305
  6. CLONAZEPAM (635A) [Interacting]
     Active Substance: CLONAZEPAM
     Indication: INTENTIONAL OVERDOSE
     Route: 048
     Dates: start: 20170306, end: 20170306

REACTIONS (4)
  - Drug interaction [Unknown]
  - Intentional overdose [None]
  - Coma [Recovered/Resolved]
  - Intentional overdose [Recovered/Resolved]

NARRATIVE: CASE EVENT DATE: 20170306
